FAERS Safety Report 11448013 (Version 1)
Quarter: 2015Q3

REPORT INFORMATION
  Report Type: Spontaneous
  Country: US (occurrence: US)
  Receive Date: 20150831
  Receipt Date: 20150831
  Transmission Date: 20151125
  Serious: No
  Sender: FDA-Public Use
  Company Number: US-ELI_LILLY_AND_COMPANY-US200905003699

PATIENT
  Age: 55 Year
  Sex: Female
  Weight: 83.9 kg

DRUGS (5)
  1. FOSRENOL [Concomitant]
     Active Substance: LANTHANUM CARBONATE
     Indication: HYPERPHOSPHATAEMIA
     Dosage: 1000 MG, 3/D
     Route: 048
     Dates: start: 200811
  2. LYRICA [Concomitant]
     Active Substance: PREGABALIN
  3. FUROSEMIDE. [Concomitant]
     Active Substance: FUROSEMIDE
  4. AMITRIPTYLINE [Concomitant]
     Active Substance: AMITRIPTYLINE
  5. CYMBALTA [Suspect]
     Active Substance: DULOXETINE HYDROCHLORIDE
     Indication: NEUROPATHY PERIPHERAL
     Route: 048
     Dates: start: 200810, end: 2008

REACTIONS (2)
  - Hyperphosphataemia [Unknown]
  - Diarrhoea [Recovered/Resolved]

NARRATIVE: CASE EVENT DATE: 200810
